FAERS Safety Report 22283599 (Version 1)
Quarter: 2023Q2

REPORT INFORMATION
  Report Type: Spontaneous
  Country: US (occurrence: None)
  Receive Date: 20230503
  Receipt Date: 20230503
  Transmission Date: 20230722
  Serious: Yes (Other)
  Sender: FDA-Public Use
  Company Number: None

PATIENT
  Age: 56 Year
  Sex: Female
  Weight: 70.65 kg

DRUGS (5)
  1. EXTRA STRENGTH ACETAMINOPHEN [Suspect]
     Active Substance: ACETAMINOPHEN
     Indication: Back pain
     Dosage: 100 TABLETS AS NEEDED ORAL
     Route: 048
     Dates: start: 20230101, end: 20230502
  2. LEVSIN [Concomitant]
     Active Substance: HYOSCYAMINE SULFATE
  3. BENADRYL [Concomitant]
     Active Substance: DIPHENHYDRAMINE HYDROCHLORIDE
  4. VITAMINS [Concomitant]
     Active Substance: VITAMINS
  5. HERBALS [Concomitant]
     Active Substance: HERBALS

REACTIONS (2)
  - Gastric disorder [None]
  - Product contamination physical [None]

NARRATIVE: CASE EVENT DATE: 20230502
